FAERS Safety Report 8859451 (Version 1)
Quarter: 2012Q4

REPORT INFORMATION
  Report Type: Report from Study
  Country: US (occurrence: US)
  Receive Date: 20121024
  Receipt Date: 20121024
  Transmission Date: 20130627
  Serious: Yes (Other)
  Sender: FDA-Public Use
  Company Number: US-PFIZER INC-2012256624

PATIENT
  Age: 42 Year
  Sex: Female

DRUGS (6)
  1. VARENICLINE TARTRATE [Suspect]
     Indication: SMOKING CESSATION THERAPY
     Dosage: UNK
  2. LAMOTRIGINE [Concomitant]
     Indication: BIPOLAR DISORDER
     Dosage: 200 mg, daily
  3. FLUOXETINE [Concomitant]
     Indication: BIPOLAR DISORDER
     Dosage: 60 mg, daily
  4. TRAZODONE [Concomitant]
     Indication: SLEEP DISORDER
     Dosage: 50 mg, UNK
  5. METOPROLOL [Concomitant]
     Dosage: UNK
  6. OMEPRAZOLE [Concomitant]
     Dosage: UNK

REACTIONS (8)
  - Hallucination [Unknown]
  - Tachyphrenia [Unknown]
  - Nightmare [Recovering/Resolving]
  - Agitation [Unknown]
  - Headache [Unknown]
  - Sleep apnoea syndrome [Unknown]
  - Depression [Unknown]
  - Affect lability [Unknown]
